FAERS Safety Report 9966224 (Version 1)
Quarter: 2014Q1

REPORT INFORMATION
  Report Type: Report from Study
  Country: US (occurrence: US)
  Receive Date: 20140305
  Receipt Date: 20140305
  Transmission Date: 20141002
  Serious: No
  Sender: FDA-Public Use
  Company Number: US-ABBVIE-13P-163-1121450-00

PATIENT
  Sex: Male

DRUGS (2)
  1. HUMIRA [Suspect]
     Indication: CROHN^S DISEASE
     Dates: start: 201207
  2. PROAIR [Concomitant]
     Indication: ASTHMA

REACTIONS (7)
  - Intestinal ulcer [Recovering/Resolving]
  - Abdominal pain [Recovered/Resolved]
  - Flatulence [Recovered/Resolved]
  - Seasonal allergy [Unknown]
  - Sneezing [Unknown]
  - Dry mouth [Unknown]
  - Stress [Unknown]
